FAERS Safety Report 17964179 (Version 1)
Quarter: 2020Q2

REPORT INFORMATION
  Report Type: Spontaneous
  Country: IQ (occurrence: IQ)
  Receive Date: 20200630
  Receipt Date: 20200630
  Transmission Date: 20200714
  Serious: Yes (Other)
  Sender: FDA-Public Use
  Company Number: IQ-BAYER-2020-129785

PATIENT
  Age: 0 Day
  Sex: Male

DRUGS (4)
  1. SALINE-TROSE [Concomitant]
     Route: 064
  2. PARACETAMOL [Concomitant]
     Active Substance: ACETAMINOPHEN
     Route: 064
  3. CHLOROQUINE. [Suspect]
     Active Substance: CHLOROQUINE
     Route: 064
  4. SALBUTAMOL [Concomitant]
     Active Substance: ALBUTEROL
     Route: 064

REACTIONS (3)
  - Exposure during pregnancy [None]
  - Premature baby [None]
  - Low birth weight baby [None]

NARRATIVE: CASE EVENT DATE: 20200330
